FAERS Safety Report 5777710-7 (Version None)
Quarter: 2008Q2

REPORT INFORMATION
  Report Type: 
  Country: None (occurrence: None)
  Receive Date: 20080618
  Receipt Date: 20080611
  Transmission Date: 20081010
  Serious: Yes (Other)
  Sender: FDA-Public Use
  Company Number: US-BOEHRINGER INGELHEIM GMBH, GERMANY-2008-BP-07848BP

PATIENT
  Sex: Male

DRUGS (5)
  1. FLOMAX [Suspect]
     Indication: BENIGN PROSTATIC HYPERPLASIA
     Route: 048
     Dates: start: 20080501, end: 20080501
  2. FLOMAX [Suspect]
     Indication: PROSTATOMEGALY
  3. ZOCOR [Concomitant]
     Indication: BLOOD CHOLESTEROL INCREASED
  4. BYETTA [Concomitant]
     Indication: DIABETES MELLITUS
  5. METFORMIN [Concomitant]
     Indication: DIABETES MELLITUS

REACTIONS (9)
  - ABNORMAL DREAMS [None]
  - CATATONIA [None]
  - DECREASED APPETITE [None]
  - DIZZINESS [None]
  - HYPOAESTHESIA [None]
  - NAUSEA [None]
  - PARALYSIS [None]
  - POLLAKIURIA [None]
  - PYREXIA [None]
